FAERS Safety Report 13191958 (Version 1)
Quarter: 2017Q1

REPORT INFORMATION
  Report Type: Spontaneous
  Country: US (occurrence: US)
  Receive Date: 20170207
  Receipt Date: 20170207
  Transmission Date: 20170428
  Serious: No
  Sender: FDA-Public Use
  Company Number: US-PFIZER INC-2016510300

PATIENT
  Age: 63 Year
  Sex: Male
  Weight: 113.4 kg

DRUGS (20)
  1. ALBUTEROL HFA [Concomitant]
     Active Substance: ALBUTEROL SULFATE
     Indication: DYSPNOEA
     Dosage: 2 DF, AS NEEDED
     Route: 055
  2. TOPROL XL [Concomitant]
     Active Substance: METOPROLOL SUCCINATE
     Dosage: 250 MG, DAILY
     Route: 048
  3. K-DUR [Concomitant]
     Active Substance: POTASSIUM CHLORIDE
     Dosage: 20 MEQ, DAILY
     Route: 048
  4. KLOR-CON [Concomitant]
     Active Substance: POTASSIUM CHLORIDE
     Dosage: 20 MEQ, DAILY
     Route: 048
  5. AMBIEN [Concomitant]
     Active Substance: ZOLPIDEM TARTRATE
     Dosage: 10 MG, AS NEEDED
     Route: 048
  6. ALBUTEROL HFA [Concomitant]
     Active Substance: ALBUTEROL SULFATE
     Indication: COUGH
  7. COLCRYS [Concomitant]
     Active Substance: COLCHICINE
     Dosage: 0.6 MG, AS NEEDED [TAKE 1 TABLET (0.6 MG TOTAL) BY MOUTH TWICE DAILY PRN]
     Route: 048
  8. LASIX [Concomitant]
     Active Substance: FUROSEMIDE
     Dosage: 60 MG, DAILY [TAKE THREE TABLETS BY MOUTH EVERY DAY]
     Route: 048
  9. RAPAMUNE [Suspect]
     Active Substance: SIROLIMUS
     Dosage: 2.5 MG, DAILY (2 TABLETS OF 1 MG AND 1 TABLETS OF 0.5 MG)
     Route: 048
  10. CELLCEPT [Concomitant]
     Active Substance: MYCOPHENOLATE MOFETIL\MYCOPHENOLATE MOFETIL HYDROCHLORIDE
     Dosage: 250 MG, 2X/DAY
     Route: 048
  11. PRILOSEC [Concomitant]
     Active Substance: OMEPRAZOLE MAGNESIUM
     Dosage: 20 MG, 1X/DAY [TAKE ONE CAPSULE BY MOUTH EVERY DAY IN THE MORNING BEFORE BREAKFAST]
     Route: 048
  12. DELTASONE [Concomitant]
     Active Substance: PREDNISONE
     Dosage: 1.5 MG, DAILY [TAKE 1.5 TABLETS DAILY WITH FOOD]
     Route: 048
  13. FLOMAX [Concomitant]
     Active Substance: TAMSULOSIN HYDROCHLORIDE
     Dosage: 0.4 MG, 1X/DAY [EVERY DAY AT BEDTIME]
     Route: 048
  14. KENALOG IN ORABASE [Concomitant]
     Active Substance: TRIAMCINOLONE ACETONIDE
     Dosage: 0.1 %, 2X/DAY
  15. RAPAMUNE [Suspect]
     Active Substance: SIROLIMUS
     Indication: PROPHYLAXIS AGAINST TRANSPLANT REJECTION
     Dosage: 3 MG, 1X/DAY (1 MG AND 2 MG TABLETS TOGETHER TO THE TOTAL OF 3 MG)
     Route: 048
  16. PROCARDIA XL [Concomitant]
     Active Substance: NIFEDIPINE
     Dosage: 60 MG, DAILY
     Route: 048
  17. SPIRIVA [Concomitant]
     Active Substance: TIOTROPIUM BROMIDE MONOHYDRATE
     Dosage: 18 UG, DAILY [INHALE 1 CAPSULE (18 MCG TOTAL) EVERY DAY]
     Route: 055
  18. SENOKOT-S [Concomitant]
     Active Substance: DOCUSATE SODIUM\SENNOSIDES
     Dosage: UNK UNK, 2X/DAY [1-2 TABLETS BID] [DOCUSATE SODIUM: 8.6 MG]/[SENNA ALEXANDRINA: 50MG]
     Route: 048
  19. ZYLOPRIM [Concomitant]
     Active Substance: ALLOPURINOL
     Dosage: 200 MG, DAILY [TAKE 2 TABLETS (200MG TOTAL) BY MOUTH EVERY DAY]
     Route: 048
  20. COZAAR [Concomitant]
     Active Substance: LOSARTAN POTASSIUM
     Dosage: 50 MG, DAILY
     Route: 048

REACTIONS (1)
  - Immunosuppressant drug level increased [Unknown]
